FAERS Safety Report 9017085 (Version 1)
Quarter: 2013Q1

REPORT INFORMATION
  Report Type: Spontaneous
  Country: US (occurrence: US)
  Receive Date: 20130117
  Receipt Date: 20130117
  Transmission Date: 20140127
  Serious: Yes (Other)
  Sender: FDA-Public Use
  Company Number: PHEH2012US011937

PATIENT
  Age: 70 Year
  Sex: Female

DRUGS (1)
  1. GILENYA [Suspect]
     Indication: MULTIPLE SCLEROSIS
     Dosage: 0.5 MG, QD
     Route: 048
     Dates: start: 20110301, end: 20130111

REACTIONS (3)
  - Retinal vein occlusion [Not Recovered/Not Resolved]
  - Macular oedema [Not Recovered/Not Resolved]
  - Visual impairment [Unknown]
